FAERS Safety Report 10206992 (Version 1)
Quarter: 2014Q2

REPORT INFORMATION
  Report Type: Spontaneous
  Country: MX (occurrence: MX)
  Receive Date: 20140530
  Receipt Date: 20140530
  Transmission Date: 20141212
  Serious: Yes (Death)
  Sender: FDA-Public Use
  Company Number: MX-PFIZER INC-2014145846

PATIENT
  Age: 83 Year
  Sex: Male

DRUGS (2)
  1. LIPITOR [Suspect]
     Indication: RENAL FAILURE
     Dosage: UNK
  2. ALDACTONE [Suspect]
     Indication: RENAL FAILURE
     Dosage: UNK

REACTIONS (2)
  - Respiratory failure [Fatal]
  - Off label use [Unknown]
